FAERS Safety Report 7560269-1 (Version None)
Quarter: 2011Q2

REPORT INFORMATION
  Report Type: 
  Country: None (occurrence: None)
  Receive Date: 20110621
  Receipt Date: 20110607
  Transmission Date: 20111010
  Serious: Yes (Other)
  Sender: FDA-Public Use
  Company Number: CA-JNJFOC-20110605173

PATIENT
  Sex: Female
  Weight: 41.8 kg

DRUGS (2)
  1. EXTRA STRENGTH TYLENOL [Concomitant]
     Indication: ILL-DEFINED DISORDER
  2. REMICADE [Suspect]
     Indication: CROHN'S DISEASE
     Route: 042
     Dates: start: 20090701

REACTIONS (5)
  - MIGRAINE [None]
  - CONSTIPATION [None]
  - ABDOMINAL PAIN UPPER [None]
  - VOMITING [None]
  - APHAGIA [None]
